FAERS Safety Report 8172429-X (Version None)
Quarter: 2012Q1

REPORT INFORMATION
  Report Type: 
  Country: None (occurrence: None)
  Receive Date: 20120224
  Receipt Date: 20120224
  Transmission Date: 20120608
  Serious: Yes (Hospitalization)
  Sender: FDA-Public Use
  Company Number: None

PATIENT
  Sex: Male
  Weight: 94.4 kg

DRUGS (3)
  1. ZOMETA [Suspect]
     Dosage: 3 MG
  2. CALCIUM CARBONATE [Suspect]
     Dosage: 16200 MG
  3. VITAMIN D2 [Suspect]
     Dosage: 5400 IU

REACTIONS (6)
  - FALL [None]
  - NO THERAPEUTIC RESPONSE [None]
  - RENAL FAILURE CHRONIC [None]
  - PNEUMONIA [None]
  - RIB FRACTURE [None]
  - SYNCOPE [None]
